FAERS Safety Report 12562930 (Version 1)
Quarter: 2016Q3

REPORT INFORMATION
  Report Type: Other
  Country: PT (occurrence: PT)
  Receive Date: 20160715
  Receipt Date: 20160715
  Transmission Date: 20161109
  Serious: Yes (Life-Threatening)
  Sender: FDA-Public Use
  Company Number: PT-BAUSCH-BL-2016-016580

PATIENT
  Age: 72 Year
  Sex: Female

DRUGS (3)
  1. CLARITHROMYCIN. [Concomitant]
     Active Substance: CLARITHROMYCIN
     Indication: HELICOBACTER INFECTION
  2. METRONIDAZOLE. [Suspect]
     Active Substance: METRONIDAZOLE
     Indication: HELICOBACTER INFECTION
     Route: 065
  3. WARFARIN SODIUM. [Suspect]
     Active Substance: WARFARIN SODIUM
     Indication: ANTICOAGULANT THERAPY
     Route: 065

REACTIONS (3)
  - Pulmonary alveolar haemorrhage [Unknown]
  - Ecchymosis [Unknown]
  - Haemoglobin decreased [Unknown]
